FAERS Safety Report 4602648-8 (Version None)
Quarter: 2005Q1

REPORT INFORMATION
  Report Type: 
  Country: None (occurrence: None)
  Receive Date: 20050307
  Receipt Date: 20050218
  Transmission Date: 20050727
  Serious: Yes (Life-Threatening, Hospitalization, Other)
  Sender: FDA-Public Use
  Company Number: 2005026614

PATIENT
  Age: 77 Year
  Sex: Female
  Weight: 61.2 kg

DRUGS (5)
  1. CELECOXIB (CELECOXIB) [Suspect]
     Indication: BREAST CANCER
     Dosage: 800 MG (200 MG, 2 IN 1 D), ORAL
     Route: 048
     Dates: start: 20040710, end: 20041219
  2. EXEMESTANE [Suspect]
     Indication: BREAST CANCER
     Dosage: 25 MG
     Dates: start: 20040710
  3. ALENDRONATE SODIUM [Concomitant]
  4. ATORVASTATIN CALCIUM [Concomitant]
  5. THERAPEUTIC RADIOPHARMACEUTICALS (THERAPEUTIC RADIOPHARMACEUTICALS) [Concomitant]

REACTIONS (15)
  - BLOOD PRESSURE DECREASED [None]
  - CARDIAC FAILURE CONGESTIVE [None]
  - CARDIOMYOPATHY [None]
  - CORONARY ARTERY DISEASE [None]
  - CORONARY ARTERY STENOSIS [None]
  - FEELING ABNORMAL [None]
  - HEADACHE [None]
  - HYPERCHOLESTEROLAEMIA [None]
  - HYPERTENSION [None]
  - MUSCLE SPASMS [None]
  - MYOCARDIAL INFARCTION [None]
  - MYOCARDIAL ISCHAEMIA [None]
  - PALPITATIONS [None]
  - TINNITUS [None]
  - VASCULAR CALCIFICATION [None]
